FAERS Safety Report 8604922-7 (Version None)
Quarter: 2012Q3

REPORT INFORMATION
  Report Type: 
  Country: None (occurrence: None)
  Receive Date: 20120820
  Receipt Date: 20120809
  Transmission Date: 20120928
  Serious: Yes (Hospitalization, Other)
  Sender: FDA-Public Use
  Company Number: CN-ASTRAZENECA-2012SE58098

PATIENT
  Age: 15360 Day
  Sex: Female
  Weight: 50 kg

DRUGS (2)
  1. LIDOCAINE-HYDROCHLORID ACID [Concomitant]
     Indication: LOCAL ANAESTHESIA
     Route: 065
     Dates: start: 20100830, end: 20100830
  2. ROPIVACAINE HYDROCHLORIDE [Suspect]
     Indication: LOCAL ANAESTHESIA
     Route: 065
     Dates: start: 20100830, end: 20100830

REACTIONS (5)
  - HYPOAESTHESIA [None]
  - HEADACHE [None]
  - TACHYCARDIA [None]
  - BLOOD PRESSURE INCREASED [None]
  - HYPERSOMNIA [None]
